FAERS Safety Report 24165307 (Version 2)
Quarter: 2024Q4

REPORT INFORMATION
  Report Type: Spontaneous
  Country: BR (occurrence: BR)
  Receive Date: 20240802
  Receipt Date: 20241011
  Transmission Date: 20250115
  Serious: Yes (Hospitalization)
  Sender: CSL BEHRING
  Company Number: BR-BEH-2024176287

PATIENT
  Age: 9 Year
  Sex: Male
  Weight: 19 kg

DRUGS (6)
  1. HIZENTRA [Suspect]
     Active Substance: HUMAN IMMUNOGLOBULIN G
     Indication: Secondary immunodeficiency
     Dosage: 100 MG/KG, QW
     Route: 058
     Dates: start: 202407
  2. HIZENTRA [Suspect]
     Active Substance: HUMAN IMMUNOGLOBULIN G
     Indication: DiGeorge^s syndrome
     Dosage: 100 MG - 2ND DOSE
     Route: 058
     Dates: start: 202407, end: 202407
  3. HIZENTRA [Suspect]
     Active Substance: HUMAN IMMUNOGLOBULIN G
     Indication: Vaccination failure
     Dosage: 100 MG - 3RD DOSE
     Route: 058
     Dates: start: 20240718, end: 20240718
  4. ELTROMBOPAG [Concomitant]
     Active Substance: ELTROMBOPAG
  5. AMOXICILLIN [Concomitant]
     Active Substance: AMOXICILLIN
     Indication: Prophylaxis
  6. HUMAN IMMUNOGLOBULIN G [Concomitant]
     Active Substance: HUMAN IMMUNOGLOBULIN G

REACTIONS (3)
  - Gingival bleeding [Recovering/Resolving]
  - Oral contusion [Recovered/Resolved]
  - Gingival bleeding [Recovered/Resolved]

NARRATIVE: CASE EVENT DATE: 20240701
